FAERS Safety Report 25453774 (Version 3)
Quarter: 2025Q3

REPORT INFORMATION
  Report Type: Spontaneous
  Country: AU (occurrence: AU)
  Receive Date: 20250619
  Receipt Date: 20250715
  Transmission Date: 20251020
  Serious: Yes (Other)
  Sender: JOHNSON AND JOHNSON
  Company Number: AU-JNJFOC-20250617163

PATIENT
  Age: 15 Year

DRUGS (10)
  1. INFLIXIMAB [Suspect]
     Active Substance: INFLIXIMAB
     Indication: Colitis
     Route: 041
  2. INFLIXIMAB [Suspect]
     Active Substance: INFLIXIMAB
     Indication: Product used for unknown indication
     Route: 065
  3. AMOXICILLIN [Suspect]
     Active Substance: AMOXICILLIN
     Indication: Colitis
     Route: 048
  4. DOXYCYCLINE [Suspect]
     Active Substance: DOXYCYCLINE
     Indication: Colitis
     Route: 048
  5. DOXYCYCLINE [Suspect]
     Active Substance: DOXYCYCLINE
  6. METHYLPREDNISOLONE [Suspect]
     Active Substance: METHYLPREDNISOLONE
     Indication: Colitis
     Route: 042
  7. METRONIDAZOLE [Suspect]
     Active Substance: METRONIDAZOLE
     Indication: Colitis
     Route: 048
  8. METRONIDAZOLE [Suspect]
     Active Substance: METRONIDAZOLE
  9. VANCOMYCIN [Suspect]
     Active Substance: VANCOMYCIN
     Indication: Colitis
     Dosage: INTERVAL: 1 DAY
     Route: 048
  10. CIPROFLOXACIN [Suspect]
     Active Substance: CIPROFLOXACIN
     Indication: Colitis ulcerative

REACTIONS (2)
  - Drug ineffective [Unknown]
  - Off label use [Unknown]
